FAERS Safety Report 5709878-2 (Version None)
Quarter: 2008Q2

REPORT INFORMATION
  Report Type: 
  Country: None (occurrence: None)
  Receive Date: 20080418
  Receipt Date: 20070413
  Transmission Date: 20081010
  Serious: No
  Sender: FDA-Public Use
  Company Number: US-ASTRAZENECA-2007UW07322

PATIENT
  Age: 81 Year
  Sex: Female
  Weight: 68 kg

DRUGS (4)
  1. TOPROL-XL [Suspect]
     Route: 048
  2. CRESTOR [Suspect]
  3. GLUCOTROL [Concomitant]
     Indication: DIABETES MELLITUS
     Route: 048
  4. ASPIRIN [Concomitant]
     Route: 048

REACTIONS (4)
  - ASTHENIA [None]
  - CONTUSION [None]
  - PRURITUS [None]
  - SOMNOLENCE [None]
